FAERS Safety Report 4846212-4 (Version None)
Quarter: 2005Q4

REPORT INFORMATION
  Report Type: 
  Country: None (occurrence: None)
  Receive Date: 20051201
  Receipt Date: 19991104
  Transmission Date: 20060501
  Serious: Yes (Death, Hospitalization)
  Sender: FDA-Public Use
  Company Number: 9953638

PATIENT
  Age: 61 Year
  Sex: Male
  Weight: 92 kg

DRUGS (8)
  1. SERTRALINE HCL [Suspect]
     Indication: DEPRESSION
     Dosage: 50 MG (DAILY), ORAL
     Route: 048
     Dates: start: 19990610, end: 19990612
  2. DIGOXIN [Concomitant]
  3. DIAZEPAM [Concomitant]
  4. HUMAN ISOPHANE INSULIN (ISOPHANE INSULIN) [Concomitant]
  5. CERIVASTATIN (CERIVASTATIN) [Concomitant]
  6. METOPROLOL (METOPROLOL) [Concomitant]
  7. ASPIRIN [Concomitant]
  8. ZOPICLONE (ZOPICLONE) [Concomitant]

REACTIONS (2)
  - INTRACARDIAC THROMBUS [None]
  - MYOCARDIAL INFARCTION [None]
